FAERS Safety Report 6987051-8 (Version None)
Quarter: 2010Q3

REPORT INFORMATION
  Report Type: 
  Country: None (occurrence: None)
  Receive Date: 20100916
  Receipt Date: 20100909
  Transmission Date: 20110219
  Serious: No
  Sender: FDA-Public Use
  Company Number: 2009BI021692

PATIENT
  Age: 45 Year
  Sex: Female

DRUGS (1)
  1. TYSABRI [Suspect]
     Indication: MULTIPLE SCLEROSIS
     Route: 042
     Dates: start: 20090506

REACTIONS (8)
  - ASTHENIA [None]
  - CONFUSIONAL STATE [None]
  - CONTUSION [None]
  - DYSSTASIA [None]
  - FALL [None]
  - GENERAL SYMPTOM [None]
  - MUSCULAR WEAKNESS [None]
  - VOMITING [None]
